FAERS Safety Report 8186857-X (Version None)
Quarter: 2012Q1

REPORT INFORMATION
  Report Type: 
  Country: None (occurrence: None)
  Receive Date: 20120301
  Receipt Date: 20120228
  Transmission Date: 20120608
  Serious: Yes (Hospitalization)
  Sender: FDA-Public Use
  Company Number: A0967719A

PATIENT
  Age: 31 Year
  Sex: Female

DRUGS (7)
  1. NELFINAVIR MESYLATE [Suspect]
     Indication: HIV INFECTION
     Dosage: UNK / UNKNOWN / UNKNOWN
  2. TENOFOVIR DISOPROXIL FUMARATE [Suspect]
     Indication: HIV INFECTION
     Dosage: UNK / UNKNOWN / UNKNOWN
  3. LAMIVUDINE [Suspect]
     Indication: HIV INFECTION
     Dosage: UNK / UNKNOWN / UNKNOWN
  4. ZIDOVUDINE [Suspect]
     Indication: HIV INFECTION
  5. STAVUDINE [Suspect]
     Indication: HIV INFECTION
     Dosage: UNK / UNKNOWN / UNKNOWN
  6. SAQUINAVIR (FORMULATION UNKNOWN) (SAQUINAVIR) [Suspect]
     Indication: HIV INFECTION
     Dosage: UNK / UNKNOWN / UNKNOWN
  7. LOPINAVIR AND RITONAVIR [Suspect]
     Indication: HIV INFECTION
     Dosage: UNK / UNKNOWN / UNKNOWN

REACTIONS (9)
  - GAMMA-GLUTAMYLTRANSFERASE INCREASED [None]
  - ASTHENIA [None]
  - SKIN ULCER [None]
  - BLOOD ALKALINE PHOSPHATASE INCREASED [None]
  - URINARY TRACT INFECTION [None]
  - PANCYTOPENIA [None]
  - OSTEOPOROSIS [None]
  - PYREXIA [None]
  - BLOOD CALCIUM DECREASED [None]
